FAERS Safety Report 6859042-9 (Version None)
Quarter: 2010Q3

REPORT INFORMATION
  Report Type: 
  Country: None (occurrence: None)
  Receive Date: 20100719
  Receipt Date: 20080220
  Transmission Date: 20110219
  Serious: No
  Sender: FDA-Public Use
  Company Number: US-PFIZER INC-2008017141

PATIENT
  Sex: Female
  Weight: 69.09 kg

DRUGS (2)
  1. CHANTIX [Suspect]
     Indication: SMOKING CESSATION THERAPY
     Route: 048
     Dates: start: 20071217
  2. VITAMINS [Concomitant]

REACTIONS (7)
  - ABNORMAL DREAMS [None]
  - ABNORMAL FAECES [None]
  - CHANGE OF BOWEL HABIT [None]
  - DIARRHOEA [None]
  - FLATULENCE [None]
  - MALAISE [None]
  - WEIGHT INCREASED [None]
